FAERS Safety Report 5825675-1 (Version None)
Quarter: 2008Q3

REPORT INFORMATION
  Report Type: 
  Country: None (occurrence: None)
  Receive Date: 20080722
  Receipt Date: 20080710
  Transmission Date: 20090109
  Serious: Yes (Hospitalization)
  Sender: FDA-Public Use
  Company Number: 2008BI012848

PATIENT
  Age: 44 Year
  Sex: Female

DRUGS (2)
  1. AVONEX [Suspect]
     Indication: MULTIPLE SCLEROSIS
     Dosage: 30 UG; QW; IM, 30 UG; QW; IM
     Route: 030
     Dates: start: 20050930, end: 20070313
  2. AVONEX [Suspect]
     Indication: MULTIPLE SCLEROSIS
     Dosage: 30 UG; QW; IM, 30 UG; QW; IM
     Route: 030
     Dates: start: 20080427

REACTIONS (6)
  - APHONIA [None]
  - FALL [None]
  - INFLUENZA LIKE ILLNESS [None]
  - MEMORY IMPAIRMENT [None]
  - MULTIPLE SCLEROSIS [None]
  - MUSCULAR WEAKNESS [None]
